FAERS Safety Report 4749872-1 (Version None)
Quarter: 2005Q3

REPORT INFORMATION
  Report Type: 
  Country: None (occurrence: None)
  Receive Date: 20050822
  Receipt Date: 20050816
  Transmission Date: 20060218
  Serious: Yes (Other)
  Sender: FDA-Public Use
  Company Number: PHBS2005TR11894

PATIENT
  Age: 36 Year
  Sex: Male

DRUGS (2)
  1. ERGOTAMINE TARTRATE [Suspect]
     Indication: MIGRAINE
     Dosage: 2 MG/D
     Route: 048
  2. ERGOTAMINE TARTRATE [Suspect]
     Dosage: 2MG/D

REACTIONS (6)
  - BLOOD IMMUNOGLOBULIN A INCREASED [None]
  - BLOOD IMMUNOGLOBULIN E INCREASED [None]
  - PITYRIASIS ROSEA [None]
  - RASH PAPULOSQUAMOUS [None]
  - RASH PRURITIC [None]
  - RED BLOOD CELL SEDIMENTATION RATE INCREASED [None]
